FAERS Safety Report 7405600-2 (Version None)
Quarter: 2011Q2

REPORT INFORMATION
  Report Type: 
  Country: None (occurrence: None)
  Receive Date: 20110411
  Receipt Date: 20110401
  Transmission Date: 20111010
  Serious: Yes (Death, Hospitalization)
  Sender: FDA-Public Use
  Company Number: PHHO2010ES14062

PATIENT
  Sex: Male
  Weight: 94 kg

DRUGS (5)
  1. BLINDED NO TREATMENT RECEIVED [Suspect]
     Indication: CARDIAC FAILURE CHRONIC
     Dosage: 100
     Route: 048
     Dates: start: 20100831
  2. FUROSEMIDE [Concomitant]
  3. ENALAPRIL MALEATE [Suspect]
     Indication: CARDIAC FAILURE CHRONIC
     Dosage: 100
     Route: 048
     Dates: start: 20100831
  4. NEBIVOLOL [Concomitant]
  5. BLINDED LCZ696 [Suspect]
     Indication: CARDIAC FAILURE CHRONIC
     Dosage: 100
     Route: 048
     Dates: start: 20100831

REACTIONS (7)
  - SEPSIS [None]
  - ACINETOBACTER BACTERAEMIA [None]
  - OEDEMA [None]
  - CARDIAC FAILURE ACUTE [None]
  - CELLULITIS [None]
  - CONDITION AGGRAVATED [None]
  - DYSPNOEA [None]
